FAERS Safety Report 5945852-9 (Version None)
Quarter: 2008Q4

REPORT INFORMATION
  Report Type: 
  Country: None (occurrence: None)
  Receive Date: 20081110
  Receipt Date: 20081106
  Transmission Date: 20090506
  Serious: Yes (Hospitalization, Other)
  Sender: FDA-Public Use
  Company Number: BR-BAYER-200814335LA

PATIENT
  Age: 38 Year
  Sex: Female

DRUGS (8)
  1. BETAFERON [Suspect]
     Indication: MULTIPLE SCLEROSIS
     Dosage: UNIT DOSE: 1.2 ML
     Route: 058
     Dates: start: 20070301
  2. BETAFERON [Suspect]
     Route: 058
     Dates: start: 20080401
  3. SUSTRATE [Concomitant]
     Indication: HYPERTENSION
     Dosage: TOTAL DAILY DOSE: 30 MG  UNIT DOSE: 10 MG
     Route: 048
     Dates: start: 20040101
  4. HYDROCHLOROTHIAZIDE [Concomitant]
     Indication: HYPERTENSION
     Dosage: TOTAL DAILY DOSE: 50 MG  UNIT DOSE: 50 MG
     Route: 048
     Dates: start: 20040101
  5. ATENOLOL [Concomitant]
     Indication: HYPERTENSION
     Dosage: TOTAL DAILY DOSE: 100 MG  UNIT DOSE: 50 MG
     Route: 048
     Dates: start: 20040101
  6. LOSARTAN POTASSIUM [Concomitant]
     Indication: HYPERTENSION
     Dosage: TOTAL DAILY DOSE: 100 MG  UNIT DOSE: 50 MG
     Route: 048
     Dates: start: 20040101
  7. AMLODIPINE [Concomitant]
     Indication: HYPERTENSION
     Dosage: TOTAL DAILY DOSE: 20 MG  UNIT DOSE: 10 MG
     Route: 048
     Dates: start: 20040101
  8. CONIDILON [Concomitant]
     Indication: HYPERTENSION
     Dosage: TOTAL DAILY DOSE: 50 MG  UNIT DOSE: 25 MG
     Route: 048
     Dates: start: 20040101

REACTIONS (5)
  - ASTHENIA [None]
  - HYPERTENSION [None]
  - INSOMNIA [None]
  - INTRA-UTERINE DEATH [None]
  - MULTIPLE SCLEROSIS [None]
